FAERS Safety Report 5133678-8 (Version None)
Quarter: 2006Q4

REPORT INFORMATION
  Report Type: 
  Country: None (occurrence: None)
  Receive Date: 20061024
  Receipt Date: 20061003
  Transmission Date: 20070319
  Serious: Yes (Other)
  Sender: FDA-Public Use
  Company Number: FR-ROCHE-465770

PATIENT
  Age: 80 Year
  Sex: Female
  Weight: 60 kg

DRUGS (17)
  1. ROCEPHIN [Suspect]
     Indication: URINARY TRACT INFECTION
     Dosage: FORM REPORTED AS INJECTABLE SOLUTION. THE PATIENT RECEIVED A TOTAL OF SIX INJECTIONS.
     Route: 030
     Dates: start: 20060720, end: 20060726
  2. ROCEPHIN [Suspect]
     Route: 030
  3. FLUVOXAMINE MALEATE [Concomitant]
  4. BROMAZEPAM [Concomitant]
  5. CONTRAMAL [Concomitant]
  6. CALCIUM GLUCONATE [Concomitant]
  7. VITAMINE D [Concomitant]
  8. FOSAMAX [Concomitant]
  9. OMEPRAZOLE [Concomitant]
  10. SOPROL [Concomitant]
  11. DOLIPRANE [Concomitant]
  12. CORTANCYL [Concomitant]
     Indication: RHEUMATOID ARTHRITIS
  13. FENOFIBRATE [Concomitant]
  14. ZOLPIDEM TARTRATE [Concomitant]
     Indication: INSOMNIA
     Dosage: REPORTED AS ZOLIPIDEM.
  15. BISOPROLOL FUMARATE [Concomitant]
     Route: 048
  16. CALCIDOSE [Concomitant]
     Route: 048
  17. FOSAVANCE [Concomitant]
     Route: 048

REACTIONS (1)
  - INJECTION SITE NECROSIS [None]
